FAERS Safety Report 4402729-8 (Version None)
Quarter: 2004Q3

REPORT INFORMATION
  Report Type: 
  Country: None (occurrence: None)
  Receive Date: 20040721
  Receipt Date: 20030926
  Transmission Date: 20050211
  Serious: No
  Sender: FDA-Public Use
  Company Number: US-BRISTOL-MYERS SQUIBB COMPANY-12395430

PATIENT
  Age: 68 Year
  Sex: Female

DRUGS (1)
  1. ESTRADIOL [Suspect]
     Indication: HOT FLUSH

REACTIONS (1)
  - DRUG INEFFECTIVE [None]
